FAERS Safety Report 12488872 (Version 1)
Quarter: 2016Q2

REPORT INFORMATION
  Report Type: Spontaneous
  Country: JP (occurrence: JP)
  Receive Date: 20160622
  Receipt Date: 20160622
  Transmission Date: 20160815
  Serious: Yes (Death)
  Sender: FDA-Public Use
  Company Number: JP-MALLINCKRODT-T201602601

PATIENT
  Age: 49 Year
  Sex: Female

DRUGS (11)
  1. VEPSID [Concomitant]
     Active Substance: ETOPOSIDE
     Dosage: 25 MG
     Route: 048
  2. MAGLAX [Concomitant]
     Active Substance: MAGNESIUM OXIDE
     Dosage: 1980 MG
     Route: 048
  3. CALONAL [Concomitant]
     Active Substance: ACETAMINOPHEN
     Indication: ANALGESIC THERAPY
     Dosage: 1800 MG
     Route: 048
     Dates: start: 20150616
  4. METHADONE [Suspect]
     Active Substance: METHADONE HYDROCHLORIDE
     Indication: CANCER PAIN
     Dosage: 15 MG,  30 MG DAILY DOSE
     Route: 048
     Dates: start: 20150610, end: 20150614
  5. NEXIUM [Concomitant]
     Active Substance: ESOMEPRAZOLE MAGNESIUM
     Dosage: 20 MG
     Route: 048
  6. METHADONE [Suspect]
     Active Substance: METHADONE HYDROCHLORIDE
     Dosage: 20 MG, 40 MG DAILY DOSE
     Route: 048
     Dates: start: 20150615, end: 20150730
  7. REFLEX [Concomitant]
     Active Substance: MIRTAZAPINE
     Dosage: 30 MG
     Route: 048
  8. QUETIAPINE. [Concomitant]
     Active Substance: QUETIAPINE
     Dosage: 125 MG
     Route: 048
  9. DECADRON [Concomitant]
     Active Substance: DEXAMETHASONE
     Indication: ANALGESIC THERAPY
     Dosage: 2 MG
     Route: 048
  10. OXINORM [Concomitant]
     Active Substance: OXYCODONE HYDROCHLORIDE
     Indication: ANALGESIC THERAPY
     Dosage: 20 - 30 MG, PRN
     Route: 048
     Dates: start: 20150610
  11. NAIXAN [Concomitant]
     Active Substance: NAPROXEN SODIUM
     Dosage: 600 MG
     Route: 048

REACTIONS (1)
  - Cervix carcinoma [Fatal]

NARRATIVE: CASE EVENT DATE: 20150803
